FAERS Safety Report 10227101 (Version 1)
Quarter: 2014Q2

REPORT INFORMATION
  Report Type: Spontaneous
  Country: ZA (occurrence: ZA)
  Receive Date: 20140610
  Receipt Date: 20140610
  Transmission Date: 20141212
  Serious: Yes (Death, Other)
  Sender: FDA-Public Use
  Company Number: ZA-MERCK-1406ZAF004221

PATIENT
  Age: 43 Year
  Sex: Female

DRUGS (1)
  1. INVANZ [Suspect]
     Dosage: UNK

REACTIONS (2)
  - Adverse event [Fatal]
  - Shock hypoglycaemic [Unknown]
